FAERS Safety Report 9769392 (Version 2)
Quarter: 2013Q4

REPORT INFORMATION
  Report Type: Report from Study
  Country: CA (occurrence: CA)
  Receive Date: 20131218
  Receipt Date: 20131218
  Transmission Date: 20140711
  Serious: Yes (Other)
  Sender: FDA-Public Use
  Company Number: PHHY2013CA125898

PATIENT
  Sex: Female
  Weight: 91 kg

DRUGS (5)
  1. EXTAVIA [Suspect]
     Indication: CLINICALLY ISOLATED SYNDROME
     Dosage: 2 MIU, QOD
     Route: 058
     Dates: start: 20131022
  2. EXTAVIA [Suspect]
     Dosage: 4 MIU, QOD
     Route: 058
     Dates: start: 20131028
  3. EXTAVIA [Suspect]
     Dosage: 6 MIU, QOD
     Route: 058
  4. EXTAVIA [Suspect]
     Dosage: 8 UNK, UNK
     Route: 058
     Dates: end: 201311
  5. TYLENOL [Concomitant]
     Dosage: UNK UKN, UNK

REACTIONS (8)
  - Tremor [Recovered/Resolved]
  - Influenza like illness [Recovered/Resolved]
  - Hyperhidrosis [Recovered/Resolved]
  - Malaise [Recovered/Resolved]
  - Feeling of body temperature change [Recovered/Resolved]
  - Pyrexia [Recovered/Resolved]
  - Chills [Recovered/Resolved]
  - Dyspnoea [Recovered/Resolved]
